FAERS Safety Report 20740119 (Version 1)
Quarter: 2022Q2

REPORT INFORMATION
  Report Type: Spontaneous
  Country: AU (occurrence: AU)
  Receive Date: 20220422
  Receipt Date: 20220422
  Transmission Date: 20220721
  Serious: Yes (Hospitalization)
  Sender: FDA-Public Use
  Company Number: AU-PFIZER INC-202200574262

PATIENT
  Sex: Female

DRUGS (1)
  1. PRISTIQ EXTENDED-RELEASE [Suspect]
     Active Substance: DESVENLAFAXINE SUCCINATE

REACTIONS (6)
  - Withdrawal syndrome [Unknown]
  - Vertigo [Unknown]
  - Vision blurred [Unknown]
  - Dysarthria [Unknown]
  - Rhinorrhoea [Unknown]
  - Product dose omission in error [Unknown]
